FAERS Safety Report 8628470 (Version 3)
Quarter: 2013Q2

REPORT INFORMATION
  Report Type: Spontaneous
  Country: ES (occurrence: ES)
  Receive Date: 20120621
  Receipt Date: 20130604
  Transmission Date: 20140414
  Serious: Yes (Hospitalization, Other)
  Sender: FDA-Public Use
  Company Number: ES-ELI_LILLY_AND_COMPANY-ES201206005385

PATIENT
  Sex: Male
  Weight: 75 kg

DRUGS (4)
  1. FORSTEO [Suspect]
     Indication: OSTEOPOROSIS
     Dosage: 20 UG, QD
     Route: 058
     Dates: start: 20111203
  2. ACETENSIL PLUS [Concomitant]
     Indication: HYPERTENSION
     Dosage: UNK
     Route: 048
  3. OMEPRAZOLE [Concomitant]
     Dosage: 40 MG, QD
     Route: 048
  4. ZYVOXID [Concomitant]
     Dosage: 600 DF, BID

REACTIONS (1)
  - Colon cancer [Recovering/Resolving]
